FAERS Safety Report 8163077-6 (Version None)
Quarter: 2012Q1

REPORT INFORMATION
  Report Type: 
  Country: None (occurrence: None)
  Receive Date: 20120224
  Receipt Date: 20120220
  Transmission Date: 20120608
  Serious: Yes (Hospitalization)
  Sender: FDA-Public Use
  Company Number: US-GLAXOSMITHKLINE-A0966792A

PATIENT
  Age: 39 Year
  Sex: Female
  Weight: 55 kg

DRUGS (2)
  1. REVATIO [Concomitant]
     Dosage: 40MG THREE TIMES PER DAY
  2. FLOLAN [Suspect]
     Indication: CONNECTIVE TISSUE DISORDER
     Dosage: 21NGKM SEE DOSAGE TEXT
     Route: 042
     Dates: start: 20100825

REACTIONS (3)
  - BASEDOW'S DISEASE [None]
  - NUCLEAR MAGNETIC RESONANCE IMAGING [None]
  - WEIGHT DECREASED [None]
